FAERS Safety Report 19331259 (Version 4)
Quarter: 2022Q1

REPORT INFORMATION
  Report Type: Report from Study
  Country: CN (occurrence: CN)
  Receive Date: 20210528
  Receipt Date: 20220302
  Transmission Date: 20220423
  Serious: Yes (Death, Hospitalization, Other)
  Sender: FDA-Public Use
  Company Number: CN-TAKEDA-2021TUS031999

PATIENT
  Age: 85 Year
  Sex: Female
  Weight: 55 kg

DRUGS (21)
  1. IXAZOMIB [Suspect]
     Active Substance: IXAZOMIB
     Indication: Plasma cell myeloma
     Dosage: 4 MILLIGRAM
     Route: 048
     Dates: start: 20210223
  2. DEXAMETHASONE SODIUM PHOSPHATE [Concomitant]
     Active Substance: DEXAMETHASONE SODIUM PHOSPHATE
     Indication: Plasma cell myeloma
     Dosage: 20 MILLIGRAM
     Route: 042
     Dates: start: 20210223, end: 20210224
  3. OXYCODONE AND ACETAMINOPHEN [Concomitant]
     Active Substance: ACETAMINOPHEN\OXYCODONE HYDROCHLORIDE
     Indication: Analgesic therapy
     Dosage: UNK, Q8HR
     Route: 048
     Dates: start: 20210222, end: 20210224
  4. GLUTATHIONE [Concomitant]
     Active Substance: GLUTATHIONE
     Indication: Prophylaxis
     Dosage: 1.8 GRAM, QD
     Route: 042
     Dates: start: 20210222, end: 20210226
  5. OMEPRAZOLE SODIUM [Concomitant]
     Active Substance: OMEPRAZOLE SODIUM
     Indication: Prophylaxis
     Dosage: 40 MILLIGRAM, QD
     Route: 042
     Dates: start: 20210223, end: 20210226
  6. OXYCODONE HYDROCHLORIDE [Concomitant]
     Active Substance: OXYCODONE HYDROCHLORIDE
     Indication: Analgesic therapy
     Dosage: 10 MILLIGRAM, Q12H
     Route: 048
     Dates: start: 20210224
  7. TROPISETRON [Concomitant]
     Active Substance: TROPISETRON
     Indication: Antiemetic supportive care
     Dosage: 5 MILLIGRAM, QD
     Route: 042
     Dates: start: 20210224, end: 20210226
  8. LEVOCETIRIZINE HYDROCHLORIDE [Concomitant]
     Active Substance: LEVOCETIRIZINE HYDROCHLORIDE
     Indication: Pruritus
     Dosage: 5 MILLIGRAM
     Route: 048
     Dates: start: 20210225, end: 20210225
  9. HYDROTALCITE [Concomitant]
     Active Substance: HYDROTALCITE
     Indication: Prophylaxis
     Dosage: 0.5 GRAM, BID
     Route: 048
     Dates: start: 20210226
  10. CALCIUM CARBONATE\CHOLECALCIFEROL [Concomitant]
     Active Substance: CALCIUM CARBONATE\CHOLECALCIFEROL
     Indication: Mineral supplementation
     Dosage: 0.6 GRAM, QD
     Route: 048
     Dates: start: 20210206
  11. HORSE CHESTNUT [Concomitant]
     Active Substance: HORSE CHESTNUT
     Indication: Cerebral disorder
     Dosage: 0.4 GRAM, QD
     Route: 048
     Dates: start: 20210206
  12. HORSE CHESTNUT [Concomitant]
     Active Substance: HORSE CHESTNUT
     Indication: Dizziness
  13. HORSE CHESTNUT [Concomitant]
     Active Substance: HORSE CHESTNUT
     Indication: Cerebrovascular disorder
  14. LEUCOGEN [Concomitant]
     Active Substance: LEUCOGEN
     Dosage: 40 MILLIGRAM, TID
     Route: 048
     Dates: start: 20210206
  15. LACTULOSE [Concomitant]
     Active Substance: LACTULOSE
     Indication: Laxative supportive care
     Dosage: 15 MILLILITER, TID
     Route: 048
     Dates: start: 20210226
  16. MORPHINE HYDROCHLORIDE [Concomitant]
     Active Substance: MORPHINE HYDROCHLORIDE
     Indication: Analgesic therapy
     Dosage: 10 MILLIGRAM
     Route: 048
     Dates: start: 20210323, end: 20210323
  17. ESTAZOLAM [Concomitant]
     Active Substance: ESTAZOLAM
     Indication: Insomnia
     Dosage: 10 MILLIGRAM
     Route: 048
     Dates: start: 20210323, end: 20210323
  18. ESTAZOLAM [Concomitant]
     Active Substance: ESTAZOLAM
     Indication: Sleep disorder
  19. ZOLEDRONIC ACID [Concomitant]
     Active Substance: ZOLEDRONIC ACID
     Indication: Plasma cell myeloma
     Dosage: 4 MILLIGRAM
     Route: 042
     Dates: start: 20210324, end: 20210324
  20. POTASSIUM CHLORIDE [Concomitant]
     Active Substance: POTASSIUM CHLORIDE
     Indication: Blood potassium decreased
     Dosage: 20 MILLILITER
     Route: 048
     Dates: start: 20210324, end: 20210324
  21. POTASSIUM CHLORIDE [Concomitant]
     Active Substance: POTASSIUM CHLORIDE
     Indication: Mineral supplementation

REACTIONS (5)
  - Plasma cell myeloma [Fatal]
  - Deep vein thrombosis [Not Recovered/Not Resolved]
  - Respiratory tract infection [Recovering/Resolving]
  - Vulvovaginal pruritus [Not Recovered/Not Resolved]
  - Hypoproteinaemia [Recovering/Resolving]

NARRATIVE: CASE EVENT DATE: 20210325
